FAERS Safety Report 5731071-8 (Version None)
Quarter: 2008Q2

REPORT INFORMATION
  Report Type: 
  Country: None (occurrence: None)
  Receive Date: 20080505
  Receipt Date: 20080417
  Transmission Date: 20081010
  Serious: Yes (Hospitalization)
  Sender: FDA-Public Use
  Company Number: 2008-01529

PATIENT
  Age: 61 Year
  Sex: Female
  Weight: 54.1 kg

DRUGS (3)
  1. VELCADE [Suspect]
     Indication: MULTIPLE MYELOMA
     Dosage: 1.3 MG/M2, INTRAVENOUS
     Route: 042
  2. DOXIL [Suspect]
     Indication: MULTIPLE MYELOMA
     Dosage: 20 MG/M2, INTRAVENOUS
     Route: 042
  3. THALIDOMIDE [Suspect]
     Indication: MULTIPLE MYELOMA
     Dosage: 200 MG, ORAL
     Route: 048

REACTIONS (1)
  - HOSPITALISATION [None]
